FAERS Safety Report 9859283 (Version 1)
Quarter: 2014Q1

REPORT INFORMATION
  Report Type: Spontaneous
  Country: US (occurrence: US)
  Receive Date: 20140131
  Receipt Date: 20140131
  Transmission Date: 20141002
  Serious: Yes (Death)
  Sender: FDA-Public Use
  Company Number: US-009507513-1401USA013679

PATIENT
  Age: 31 Year
  Sex: Male

DRUGS (1)
  1. SOLARCAINE COOL ALOE WITH LIDOCAINE SPRAY [Suspect]
     Indication: PRODUCT USED FOR UNKNOWN INDICATION
     Route: 045

REACTIONS (2)
  - Death [Fatal]
  - Drug abuse [Fatal]
